FAERS Safety Report 9678734 (Version 1)
Quarter: 2013Q4

REPORT INFORMATION
  Report Type: Spontaneous
  Country: US (occurrence: US)
  Receive Date: 20131108
  Receipt Date: 20131108
  Transmission Date: 20140711
  Serious: Yes (Hospitalization, Other)
  Sender: FDA-Public Use
  Company Number: US-TEVA-443302USA

PATIENT
  Age: 49 Year
  Sex: Male

DRUGS (5)
  1. RIBAVIRIN [Suspect]
     Indication: CHRONIC HEPATITIS C
     Dosage: 400 MILLIGRAM DAILY;
     Route: 048
  2. RIBAVIRIN [Suspect]
     Dosage: 200 MILLIGRAM DAILY;
     Route: 048
  3. PEGINTERFERON ALFA-2A [Suspect]
     Indication: CHRONIC HEPATITIS C
     Dosage: 19.2857 MICROGRAM DAILY;
     Route: 058
  4. LISINOPRIL [Concomitant]
     Route: 065
  5. FUROSEMIDE [Concomitant]
     Route: 065

REACTIONS (9)
  - Renal failure acute [Unknown]
  - Post procedural cellulitis [Unknown]
  - Anaemia [Recovering/Resolving]
  - Fatigue [Unknown]
  - Irritability [Unknown]
  - Nausea [Unknown]
  - Weight decreased [Unknown]
  - Myalgia [Unknown]
  - Disturbance in attention [Unknown]
